FAERS Safety Report 10651735 (Version 1)
Quarter: 2014Q4

REPORT INFORMATION
  Report Type: Report from Study
  Country: US (occurrence: US)
  Receive Date: 20141215
  Receipt Date: 20141215
  Transmission Date: 20150529
  Serious: Yes (Other)
  Sender: FDA-Public Use
  Company Number: PHEH2014US024390

PATIENT
  Sex: Female

DRUGS (2)
  1. DESFERAL [Suspect]
     Active Substance: DEFEROXAMINE MESYLATE
     Indication: THALASSAEMIA
     Dosage: 500 MG
     Route: 065
  2. EXJADE [Suspect]
     Active Substance: DEFERASIROX
     Indication: THALASSAEMIA
     Dosage: 1250 MG, QD (1X 250 MG TABLET + 2 X 500 MG, TABLET)
     Route: 048

REACTIONS (13)
  - Bronchitis [Unknown]
  - Vitreous floaters [Unknown]
  - Dysgeusia [Unknown]
  - Splenomegaly [Unknown]
  - Thrombocytopenia [Unknown]
  - Immune system disorder [Unknown]
  - Thalassaemia beta [Unknown]
  - Vitreous degeneration [Unknown]
  - Haemochromatosis [Unknown]
  - Leukopenia [Unknown]
  - Anaemia [Unknown]
  - Fatigue [Unknown]
  - Folate deficiency [Unknown]
